FAERS Safety Report 9159826 (Version 1)
Quarter: 2013Q1

REPORT INFORMATION
  Report Type: Spontaneous
  Country: US (occurrence: US)
  Receive Date: 20130313
  Receipt Date: 20130313
  Transmission Date: 20140127
  Serious: Yes (Other)
  Sender: FDA-Public Use
  Company Number: US-PFIZER INC-2013080943

PATIENT
  Age: 38 Year
  Sex: Female
  Weight: 104 kg

DRUGS (1)
  1. LYRICA [Suspect]
     Indication: FIBROMYALGIA
     Dosage: 75 MG, 2X/DAY
     Route: 048
     Dates: start: 20130121, end: 2013

REACTIONS (7)
  - Suicide attempt [Unknown]
  - Suicidal ideation [Unknown]
  - Mood altered [Unknown]
  - Abnormal behaviour [Unknown]
  - Aggression [Unknown]
  - Depression [Unknown]
  - Anxiety [Unknown]
